FAERS Safety Report 11787189 (Version 2)
Quarter: 2015Q4

REPORT INFORMATION
  Report Type: Report from Study
  Country: FR (occurrence: FR)
  Receive Date: 20151130
  Receipt Date: 20151202
  Transmission Date: 20160305
  Serious: Yes (Death, Life-Threatening)
  Sender: FDA-Public Use
  Company Number: FR-SA-2015SA196436

PATIENT
  Age: 78 Year
  Sex: Male

DRUGS (3)
  1. CYMEVAN [Concomitant]
     Active Substance: GANCICLOVIR
     Indication: CYTOMEGALOVIRUS INFECTION
     Dates: start: 20150807, end: 20150827
  2. CAMPATH [Suspect]
     Active Substance: ALEMTUZUMAB
     Indication: T-CELL TYPE ACUTE LEUKAEMIA
     Dosage: FREQUENCY: 3 WEEKLY
     Route: 058
     Dates: start: 20150730
  3. ACUPAN [Concomitant]
     Active Substance: NEFOPAM HYDROCHLORIDE
     Indication: PAIN
     Dates: start: 20150825

REACTIONS (2)
  - Hepatic encephalopathy [Fatal]
  - Confusional state [Fatal]

NARRATIVE: CASE EVENT DATE: 20150827
